FAERS Safety Report 5873874-5 (Version None)
Quarter: 2008Q3

REPORT INFORMATION
  Report Type: 
  Country: None (occurrence: None)
  Receive Date: 20080903
  Receipt Date: 20080903
  Transmission Date: 20090109
  Serious: Yes (Other)
  Sender: FDA-Public Use
  Company Number: None

PATIENT
  Age: 57 Year
  Sex: Female
  Weight: 122.4712 kg

DRUGS (1)
  1. FELODIPINE ER 5MG [Suspect]
     Indication: HYPERTENSION
     Dates: start: 20080621, end: 20080830

REACTIONS (4)
  - ABASIA [None]
  - JOINT SWELLING [None]
  - OEDEMA PERIPHERAL [None]
  - RASH PRURITIC [None]
